FAERS Safety Report 7901747-2 (Version None)
Quarter: 2011Q4

REPORT INFORMATION
  Report Type: 
  Country: None (occurrence: None)
  Receive Date: 20111108
  Receipt Date: 20111028
  Transmission Date: 20120403
  Serious: Yes (Life-Threatening)
  Sender: FDA-Public Use
  Company Number: US-JNJFOC-20110810795

PATIENT
  Sex: Female
  Weight: 98.88 kg

DRUGS (6)
  1. BENAZEPRIL HYDROCHLORIDE [Concomitant]
     Indication: HYPERTENSION
     Route: 065
  2. ALL OTHER THERAPEUTIC PRODUCTS [Concomitant]
     Indication: HYPERTENSION
     Route: 065
  3. LISTERINE TOTAL CARE PLUS WHITENING [Suspect]
     Indication: DENTAL CARE
     Dosage: FILLED CAP ABOUT TWO TEASPOONSFUL, AS DIRECTED. USED JUST ONE TIME.
     Route: 048
     Dates: start: 20110822, end: 20110822
  4. INSULIN [Concomitant]
     Indication: TYPE 2 DIABETES MELLITUS
     Route: 065
  5. UNSPECIFIED OVER THE COUNTER VITAMINS [Concomitant]
     Indication: MEDICAL DIET
     Route: 065
  6. OTHER RESPIRATORY SYSTEM PRODUCTS [Concomitant]
     Indication: ASTHMA
     Route: 065

REACTIONS (1)
  - ANAPHYLACTIC SHOCK [None]
